FAERS Safety Report 25426440 (Version 1)
Quarter: 2025Q2

REPORT INFORMATION
  Report Type: Spontaneous
  Country: US (occurrence: US)
  Receive Date: 20250612
  Receipt Date: 20250612
  Transmission Date: 20250716
  Serious: No
  Sender: JOHNSON AND JOHNSON
  Company Number: US-JNJFOC-20250614066

PATIENT
  Age: 56 Year
  Sex: Female

DRUGS (1)
  1. SPRAVATO [Suspect]
     Active Substance: ESKETAMINE
     Indication: Major depression
     Route: 045

REACTIONS (3)
  - Device issue [Unknown]
  - Product dose omission issue [Unknown]
  - Emotional disorder [Unknown]

NARRATIVE: CASE EVENT DATE: 20250606
